FAERS Safety Report 9833085 (Version 1)
Quarter: 2014Q1

REPORT INFORMATION
  Report Type: Spontaneous
  Country: US (occurrence: US)
  Receive Date: 20140121
  Receipt Date: 20140121
  Transmission Date: 20141002
  Serious: No
  Sender: FDA-Public Use
  Company Number: US-B.I. PHARMACEUTICALS,INC./RIDGEFIELD-2014-BI-01609BP

PATIENT
  Age: 57 Year
  Sex: Female
  Weight: 54 kg

DRUGS (5)
  1. SPIRIVA [Suspect]
     Indication: ASTHMA
     Dosage: 18 MCG
     Route: 055
     Dates: start: 201112
  2. ADVAIR [Concomitant]
     Indication: ASTHMA
     Dosage: STRENGTH: 250/50 (NO UNIT); DAILY DOSE: 500/100 (NO UNIT)
     Route: 055
  3. SINGULAIR MONTELUKAST [Concomitant]
     Indication: ASTHMA
     Dosage: 10 MG
     Route: 048
  4. LEVOTHYROXIN [Concomitant]
     Indication: HYPOTHYROIDISM
     Dosage: 50 MCG
     Route: 048
  5. FLONASE [Concomitant]
     Dosage: 50 MG

REACTIONS (3)
  - Ocular hyperaemia [Not Recovered/Not Resolved]
  - Visual impairment [Not Recovered/Not Resolved]
  - Off label use [Unknown]
